FAERS Safety Report 5702836-3 (Version None)
Quarter: 2008Q2

REPORT INFORMATION
  Report Type: 
  Country: None (occurrence: None)
  Receive Date: 20080410
  Receipt Date: 20080410
  Transmission Date: 20081010
  Serious: Yes (Life-Threatening, Other)
  Sender: FDA-Public Use
  Company Number: None

PATIENT
  Age: 30 Year
  Sex: Female
  Weight: 81.6475 kg

DRUGS (2)
  1. EFFEXOR XR [Suspect]
     Indication: ANXIETY
     Dosage: 75MG  3X DAY PO
     Route: 048
     Dates: start: 20011130, end: 20080404
  2. EFFEXOR XR [Suspect]
     Indication: MIGRAINE
     Dosage: 75MG  3X DAY PO
     Route: 048
     Dates: start: 20011130, end: 20080404

REACTIONS (10)
  - ACTIVITIES OF DAILY LIVING IMPAIRED [None]
  - DIZZINESS [None]
  - DYSARTHRIA [None]
  - EMOTIONAL DISORDER [None]
  - IMPAIRED DRIVING ABILITY [None]
  - IMPAIRED WORK ABILITY [None]
  - MOOD SWINGS [None]
  - NAUSEA [None]
  - SUICIDAL IDEATION [None]
  - WITHDRAWAL SYNDROME [None]
